FAERS Safety Report 25987355 (Version 1)
Quarter: 2025Q4

REPORT INFORMATION
  Report Type: Spontaneous
  Country: EU (occurrence: EU)
  Receive Date: 20251103
  Receipt Date: 20251103
  Transmission Date: 20260118
  Serious: No
  Sender: ALKEM
  Company Number: EU-ALKEM LABORATORIES LIMITED-DE-ALKEM-2024-25893

PATIENT
  Sex: Female

DRUGS (6)
  1. IBUPROFEN [Suspect]
     Active Substance: IBUPROFEN
     Indication: Product used for unknown indication
     Dosage: UNK
     Route: 065
  2. OMEPRAZOLE [Suspect]
     Active Substance: OMEPRAZOLE
     Indication: Product used for unknown indication
     Dosage: UNK
     Route: 065
  3. BUDESONIDE [Suspect]
     Active Substance: BUDESONIDE
     Indication: Asthma
     Dosage: UNK
     Route: 065
  4. TORSEMIDE [Suspect]
     Active Substance: TORSEMIDE
     Indication: Limb discomfort
     Dosage: UNK, QD (EVERY 1 DAY)
     Route: 065
  5. TORSEMIDE [Suspect]
     Active Substance: TORSEMIDE
     Indication: Vein disorder
  6. TORSEMIDE [Suspect]
     Active Substance: TORSEMIDE
     Indication: Breast cancer

REACTIONS (7)
  - Retching [Not Recovered/Not Resolved]
  - Abdominal distension [Not Recovered/Not Resolved]
  - Joint swelling [Not Recovered/Not Resolved]
  - Peripheral swelling [Not Recovered/Not Resolved]
  - Cough [Not Recovered/Not Resolved]
  - Nausea [Not Recovered/Not Resolved]
  - Asthenia [Not Recovered/Not Resolved]

NARRATIVE: CASE EVENT DATE: 20220101
